FAERS Safety Report 8114945-2 (Version None)
Quarter: 2012Q1

REPORT INFORMATION
  Report Type: 
  Country: None (occurrence: None)
  Receive Date: 20120206
  Receipt Date: 20120125
  Transmission Date: 20120608
  Serious: Yes (Hospitalization, Other)
  Sender: FDA-Public Use
  Company Number: US-CELGENEUS-163-50794-12012590

PATIENT
  Age: 71 Year
  Sex: Male
  Weight: 91.935 kg

DRUGS (16)
  1. MIRALAX [Concomitant]
     Route: 065
  2. ZYRTEC [Concomitant]
     Route: 065
  3. BENADRYL [Concomitant]
     Route: 065
  4. M.V.I. [Concomitant]
     Route: 065
  5. POTASSIUM CHLORIDE [Concomitant]
     Route: 065
  6. ACETAMINOPHEN [Concomitant]
     Route: 065
  7. DOCUSATE [Concomitant]
     Route: 065
  8. PREVACID [Concomitant]
     Route: 065
  9. COMPAZINE [Concomitant]
     Route: 065
  10. CYCLOPHOSPHAMIDE [Suspect]
     Indication: LYMPHOMA
     Route: 065
     Dates: start: 20120103, end: 20120110
  11. ONDANSETRON [Concomitant]
     Route: 065
  12. MOM [Concomitant]
     Route: 065
  13. VIDAZA [Suspect]
     Indication: LYMPHOMA
     Dosage: 50 MILLIGRAM/SQ. METER
     Route: 041
     Dates: start: 20111021, end: 20120107
  14. RITUXIMAB [Suspect]
     Indication: LYMPHOMA
     Route: 065
     Dates: start: 20120103, end: 20120110
  15. VINCRISTINE [Suspect]
     Indication: LYMPHOMA
     Route: 065
     Dates: start: 20120103, end: 20120110
  16. VITAMIN D [Concomitant]
     Route: 065

REACTIONS (3)
  - CELLULITIS [None]
  - THROMBOSIS [None]
  - THROMBOCYTOPENIA [None]
